FAERS Safety Report 6810889-4 (Version None)
Quarter: 2010Q2

REPORT INFORMATION
  Report Type: 
  Country: None (occurrence: None)
  Receive Date: 20100630
  Receipt Date: 20080903
  Transmission Date: 20101027
  Serious: No
  Sender: FDA-Public Use
  Company Number: US-PFIZER INC-2008073233

PATIENT
  Sex: Female
  Weight: 76.66 kg

DRUGS (11)
  1. NICOTROL [Suspect]
     Indication: SMOKING CESSATION THERAPY
     Dosage: 1 EVERY 1 HOURS
     Dates: start: 20080902
  2. ACTOS [Concomitant]
  3. NORVASC [Concomitant]
  4. BENICAR [Concomitant]
  5. NEXIUM [Concomitant]
  6. POTASSIUM [Concomitant]
  7. LIPITOR [Concomitant]
  8. SOTALOL HCL [Concomitant]
  9. WARFARIN SODIUM [Concomitant]
  10. FLOVENT [Concomitant]
  11. COMBIVENT [Concomitant]

REACTIONS (2)
  - COUGH [None]
  - THROAT IRRITATION [None]
